FAERS Safety Report 5191163-1 (Version None)
Quarter: 2006Q4

REPORT INFORMATION
  Report Type: 
  Country: None (occurrence: None)
  Receive Date: 20061220
  Receipt Date: 20061220
  Transmission Date: 20070319
  Serious: Yes (Hospitalization)
  Sender: FDA-Public Use
  Company Number: None

PATIENT
  Age: 91 Year
  Sex: Female
  Weight: 53.978 kg

DRUGS (12)
  1. ASPIRIN [Suspect]
     Indication: PERIPHERAL VASCULAR DISORDER
     Dosage: 81 MG DAILY PO   CHRONIC
     Route: 048
  2. CLOPIDOGREL [Suspect]
     Indication: PERIPHERAL VASCULAR DISORDER
     Dosage: 75 MG DAILY PO  CHRONIC
     Route: 048
  3. ASPIRIN [Concomitant]
  4. PLAVIX [Concomitant]
  5. ZOLOFT [Concomitant]
  6. LASIX [Concomitant]
  7. FERGON [Concomitant]
  8. . [Concomitant]
  9. LIPITOR [Concomitant]
  10. M.V.I. [Concomitant]
  11. RAMIPRIL [Concomitant]
  12. COREG [Concomitant]

REACTIONS (7)
  - ANAEMIA [None]
  - BLOOD PRESSURE DIASTOLIC DECREASED [None]
  - BLOOD PRESSURE SYSTOLIC DECREASED [None]
  - COAGULOPATHY [None]
  - DUODENAL ULCER [None]
  - OESOPHAGITIS ULCERATIVE [None]
  - UPPER GASTROINTESTINAL HAEMORRHAGE [None]
